FAERS Safety Report 20310437 (Version 1)
Quarter: 2022Q1

REPORT INFORMATION
  Report Type: Spontaneous
  Country: IT (occurrence: IT)
  Receive Date: 20220107
  Receipt Date: 20220107
  Transmission Date: 20220423
  Serious: Yes (Life-Threatening)
  Sender: FDA-Public Use
  Company Number: None

PATIENT
  Age: 74 Year
  Sex: Male
  Weight: 78 kg

DRUGS (10)
  1. NIVOLUMAB [Suspect]
     Active Substance: NIVOLUMAB
     Indication: Renal cancer metastatic
     Dosage: 200 MG CYCLICAL
     Route: 041
     Dates: start: 20211112, end: 20220103
  2. INSULIN NOS [Concomitant]
     Active Substance: INSULIN NOS
     Indication: Diabetes mellitus
     Dosage: 12 INTERNATIONAL UNIT PER DAY
     Route: 058
     Dates: start: 20160615
  3. ERYTHROPOIETIN [Concomitant]
     Active Substance: ERYTHROPOIETIN
     Indication: Nephrogenic anaemia
     Dosage: 4000 KILO-INTERNATIONAL UNIT CYCLICAL
     Route: 058
     Dates: start: 20160616
  4. SODIUM BICARBONATE [Concomitant]
     Active Substance: SODIUM BICARBONATE
     Indication: Renal failure
     Dosage: 3000 MILLIGRAM PER DAY
     Route: 048
     Dates: start: 20160616
  5. MANIDIPINE [Concomitant]
     Active Substance: MANIDIPINE
     Indication: Hypertension
     Dosage: 25 MILLIGRAM PER DAY
     Route: 048
     Dates: start: 20140616
  6. LINAGLIPTIN [Concomitant]
     Active Substance: LINAGLIPTIN
     Indication: Diabetes mellitus
     Dosage: 5 MILLIGRAM PER DAY
     Route: 048
     Dates: start: 20000615
  7. PARICALCITOL [Concomitant]
     Active Substance: PARICALCITOL
     Indication: Renal failure
     Dosage: 1 MILLIGRAM CYCLICAL
     Route: 048
     Dates: start: 20160616
  8. FUROSEMIDE [Concomitant]
     Active Substance: FUROSEMIDE
     Indication: Hypertension
     Dosage: 12.5 MILLIGRAM PER DAY
     Route: 048
     Dates: start: 20160616
  9. ALLOPURINOL [Concomitant]
     Active Substance: ALLOPURINOL
     Indication: Hyperuricaemia
     Dosage: 150 MILLIGRAM PER DAY
     Route: 048
     Dates: start: 20160616
  10. FOLIC ACID [Concomitant]
     Active Substance: FOLIC ACID
     Indication: Nephrogenic anaemia
     Dosage: 5 MILLIGRAM PER DAY
     Route: 048
     Dates: start: 20160616

REACTIONS (5)
  - Dyspnoea [Recovered/Resolved]
  - Hyperhidrosis [Recovered/Resolved]
  - Hypotension [Recovered/Resolved]
  - Urinary incontinence [Recovered/Resolved]
  - Prescribed underdose [Unknown]

NARRATIVE: CASE EVENT DATE: 20211210
